FAERS Safety Report 5245805-2 (Version None)
Quarter: 2007Q1

REPORT INFORMATION
  Report Type: 
  Country: None (occurrence: None)
  Receive Date: 20070216
  Receipt Date: 20070206
  Transmission Date: 20070707
  Serious: Yes (Hospitalization, Other)
  Sender: FDA-Public Use
  Company Number: CIP06002892

PATIENT
  Age: 32 Year
  Sex: Male
  Weight: 81.6 kg

DRUGS (4)
  1. ASACOL [Suspect]
     Indication: COLITIS ULCERATIVE
     Dosage: 1200 MG TWICE DAILY, ORAL
     Route: 048
     Dates: start: 20010101, end: 20061201
  2. ZOLOFT [Concomitant]
  3. ALLEGRA D (PSEUDEPHEDRINE HYDROCHLORIDE, FEXOFENADINE HYDROCHLORIDE) [Concomitant]
  4. FOSAMAX [Concomitant]

REACTIONS (2)
  - CARDIAC TAMPONADE [None]
  - PERICARDITIS [None]
